FAERS Safety Report 4434093-2 (Version None)
Quarter: 2004Q3

REPORT INFORMATION
  Report Type: 
  Country: None (occurrence: None)
  Receive Date: 20040825
  Receipt Date: 20040809
  Transmission Date: 20050211
  Serious: Yes (Other)
  Sender: FDA-Public Use
  Company Number: DE-2004-029973

PATIENT
  Sex: Female

DRUGS (1)
  1. BETAFERON (INTERFERON BETA - 1B) INJECTION, 250MCG [Suspect]
     Dosage: SUBCUTANEOUS
     Route: 058
     Dates: start: 20040101

REACTIONS (5)
  - ERYTHEMA [None]
  - OPTIC NERVE DISORDER [None]
  - SKIN INFLAMMATION [None]
  - SKIN LESION [None]
  - VISUAL ACUITY REDUCED [None]
